FAERS Safety Report 25614690 (Version 1)
Quarter: 2025Q3

REPORT INFORMATION
  Report Type: Spontaneous
  Country: JP (occurrence: JP)
  Receive Date: 20250729
  Receipt Date: 20250729
  Transmission Date: 20251021
  Serious: Yes (Death)
  Sender: Unknown Manufacturer
  Company Number: JP-MTPC-MTPC2025-0012455

PATIENT
  Age: 88 Year
  Sex: Female

DRUGS (1)
  1. EDARAVONE [Suspect]
     Active Substance: EDARAVONE
     Route: 041

REACTIONS (1)
  - Pyrexia [Fatal]
